FAERS Safety Report 8119852-7 (Version None)
Quarter: 2012Q1

REPORT INFORMATION
  Report Type: 
  Country: None (occurrence: None)
  Receive Date: 20120206
  Receipt Date: 20120206
  Transmission Date: 20120608
  Serious: Yes (Hospitalization)
  Sender: FDA-Public Use
  Company Number: None

PATIENT
  Sex: Male

DRUGS (1)
  1. ZELBORAF [Suspect]
     Indication: METASTATIC MALIGNANT MELANOMA
     Dates: start: 20120103, end: 20120116

REACTIONS (8)
  - DYSPNOEA [None]
  - COUGH [None]
  - RASH [None]
  - PYREXIA [None]
  - NAUSEA [None]
  - OROPHARYNGEAL PAIN [None]
  - ARTHRALGIA [None]
  - PAIN IN EXTREMITY [None]
